FAERS Safety Report 25389669 (Version 1)
Quarter: 2025Q2

REPORT INFORMATION
  Report Type: Spontaneous
  Country: RO (occurrence: RO)
  Receive Date: 20250603
  Receipt Date: 20250603
  Transmission Date: 20250717
  Serious: Yes (Other)
  Sender: AUROBINDO
  Company Number: RO-SUN PHARMACEUTICAL INDUSTRIES LTD-2021RR-316712

PATIENT
  Age: 46 Year
  Sex: Male

DRUGS (5)
  1. METOPROLOL [Suspect]
     Active Substance: METOPROLOL
     Indication: Hypertension
     Route: 065
  2. PERINDOPRIL [Suspect]
     Active Substance: PERINDOPRIL
     Indication: Hypertension
     Route: 065
  3. INDAPAMIDE [Suspect]
     Active Substance: INDAPAMIDE
     Indication: Hypertension
     Route: 065
  4. TRIMETAZIDINE [Suspect]
     Active Substance: TRIMETAZIDINE
     Indication: Hypertension
     Route: 065
  5. PENTAERYTHRITOL TETRANITRATE [Suspect]
     Active Substance: PENTAERYTHRITOL TETRANITRATE
     Indication: Hypertension
     Route: 065

REACTIONS (1)
  - Therapeutic product effect incomplete [Unknown]
